FAERS Safety Report 9223274 (Version 1)
Quarter: 2013Q2

REPORT INFORMATION
  Report Type: Spontaneous
  Country: US (occurrence: None)
  Receive Date: 20130409
  Receipt Date: 20130409
  Transmission Date: 20140414
  Serious: Yes (Life-Threatening, Hospitalization)
  Sender: FDA-Public Use
  Company Number: None

PATIENT
  Age: 68 Year
  Sex: Female
  Weight: 84.6 kg

DRUGS (20)
  1. STELAZINE [Suspect]
     Indication: BIPOLAR I DISORDER
     Dosage: 2.5 MG EVERY NIGHT BY MOUTH MORE THAN 10 YEARS
     Route: 048
  2. STELAZINE [Suspect]
     Indication: MAJOR DEPRESSION
     Dosage: 2.5 MG EVERY NIGHT BY MOUTH MORE THAN 10 YEARS
     Route: 048
  3. STELAZINE [Suspect]
     Indication: PSYCHOTIC DISORDER
     Dosage: 2.5 MG EVERY NIGHT BY MOUTH MORE THAN 10 YEARS
     Route: 048
  4. LANTUS [Concomitant]
  5. FERROUS SULFATE [Concomitant]
  6. LEVOTHYROXINE [Concomitant]
  7. EFFEXOR XR [Concomitant]
  8. VITAMIN D2 [Concomitant]
  9. TRIHEXYPHENIDYL HCL [Concomitant]
  10. SEROQUEL [Concomitant]
  11. GABAPENTIN [Concomitant]
  12. MIRALAX [Concomitant]
  13. SENOKOT [Concomitant]
  14. SIMVASTATIN [Concomitant]
  15. CALCIUM [Concomitant]
  16. LIDODERM [Concomitant]
  17. LISINOPRIL [Concomitant]
  18. LAMICTAL [Concomitant]
  19. SINEMET [Concomitant]
  20. ASPIRIN [Concomitant]

REACTIONS (7)
  - Neuroleptic malignant syndrome [None]
  - Pyrexia [None]
  - Tachycardia [None]
  - Muscle rigidity [None]
  - Lethargy [None]
  - Hyporesponsive to stimuli [None]
  - Blood creatine phosphokinase increased [None]
